FAERS Safety Report 9337178 (Version 2)
Quarter: 2013Q2

REPORT INFORMATION
  Report Type: Report from Study
  Country: IT (occurrence: IT)
  Receive Date: 20130607
  Receipt Date: 20130628
  Transmission Date: 20140414
  Serious: Yes (Death, Life-Threatening, Hospitalization)
  Sender: FDA-Public Use
  Company Number: IT-GLAXOSMITHKLINE-B0897326A

PATIENT
  Age: 77 Year
  Sex: Female
  Weight: 80 kg

DRUGS (12)
  1. OFATUMUMAB [Suspect]
     Indication: CHRONIC LYMPHOCYTIC LEUKAEMIA
     Route: 042
     Dates: start: 20130423
  2. PENTOSTATIN [Suspect]
     Indication: CHRONIC LYMPHOCYTIC LEUKAEMIA
     Dosage: 2MGM2 EVERY 3 WEEKS
     Route: 042
     Dates: start: 20130424
  3. CYCLOPHOSPHAMIDE [Suspect]
     Indication: CHRONIC LYMPHOCYTIC LEUKAEMIA
     Dosage: 600MGM2 EVERY 3 WEEKS
     Route: 042
     Dates: start: 20130424
  4. TRAMADOL [Concomitant]
     Indication: BACK PAIN
     Dosage: 25MG TWICE PER DAY
     Dates: start: 20130513
  5. COTRIMOXAZOLE [Concomitant]
     Indication: ANTIBIOTIC PROPHYLAXIS
     Dosage: 500MG THREE TIMES PER WEEK
     Dates: start: 20130318
  6. ACICLOVIR [Concomitant]
     Indication: ANTIVIRAL PROPHYLAXIS
     Dosage: 400MG TWICE PER DAY
     Dates: start: 20130318
  7. ALLOPURINOL [Concomitant]
     Indication: PROPHYLAXIS
     Dosage: 300MG PER DAY
     Dates: start: 20130318
  8. DIABREZIDE [Concomitant]
     Indication: DIABETES MELLITUS
     Dosage: 30MG THREE TIMES PER DAY
  9. LISINOPRIL DIHYDRATE [Concomitant]
     Indication: HYPERTENSION
     Dosage: 20MG PER DAY
  10. DIOSMINE + HESPERIDINE [Concomitant]
     Indication: VENOUS INSUFFICIENCY
     Dosage: 500MG PER DAY
  11. CLONIDIN [Concomitant]
     Indication: HYPERTENSION
     Dosage: 5MG PER DAY
  12. TELMISARTAN + HYDROCHLOROTHIAZIDE [Concomitant]
     Indication: HYPERTENSION
     Dosage: 40MG TWICE PER DAY

REACTIONS (1)
  - Septic shock [Fatal]
